FAERS Safety Report 10586158 (Version 4)
Quarter: 2015Q1

REPORT INFORMATION
  Report Type: Spontaneous
  Country: IT (occurrence: IT)
  Receive Date: 20141116
  Receipt Date: 20150109
  Transmission Date: 20150720
  Serious: Yes (Hospitalization, Other)
  Sender: FDA-Public Use
  Company Number: IT-009507513-1411ITA004986

PATIENT
  Age: 67 Year
  Sex: Female

DRUGS (5)
  1. ZETIA [Suspect]
     Active Substance: EZETIMIBE
     Indication: TYPE IIA HYPERLIPIDAEMIA
     Dosage: 10 MG, QD
     Route: 048
     Dates: start: 2006
  2. TRIATEC (RAMIPRIL) [Concomitant]
     Active Substance: RAMIPRIL
     Indication: HYPERTENSION
     Dosage: 2.5 MG, QD
     Route: 048
  3. ELOPRAM [Concomitant]
     Active Substance: CITALOPRAM HYDROBROMIDE
     Dosage: 20 MG, QD, FROM 3/4 YEARS
     Route: 048
     Dates: start: 2010
  4. ZETIA [Suspect]
     Active Substance: EZETIMIBE
     Dosage: 10 MG, QD
     Route: 048
     Dates: end: 20140930
  5. TAVOR (FLUCONAZOLE) [Concomitant]
     Dosage: 1 MG, UNK, FROM 4/ YEARS
     Route: 048
     Dates: start: 2009

REACTIONS (18)
  - Hypoaesthesia [Unknown]
  - Hyperhidrosis [Unknown]
  - Drug ineffective [Unknown]
  - Asthenia [Unknown]
  - Rash [Unknown]
  - Movement disorder [Unknown]
  - Musculoskeletal pain [Unknown]
  - Abdominal pain [Unknown]
  - Pyrexia [Unknown]
  - Blood creatine phosphokinase MB increased [Unknown]
  - Erythema [Unknown]
  - Neck pain [Unknown]
  - Pain in extremity [Unknown]
  - Dysstasia [Unknown]
  - Constipation [Unknown]
  - Cystitis [Unknown]
  - Pain [Unknown]
  - Blood creatine phosphokinase increased [Unknown]

NARRATIVE: CASE EVENT DATE: 2014
